FAERS Safety Report 4332241-6 (Version None)
Quarter: 2004Q1

REPORT INFORMATION
  Report Type: 
  Country: None (occurrence: None)
  Receive Date: 20040331
  Receipt Date: 20040316
  Transmission Date: 20041129
  Serious: Yes (Other)
  Sender: FDA-Public Use
  Company Number: 2004203968CN

PATIENT

DRUGS (5)
  1. MEDROL [Suspect]
     Dosage: }500MG/QD (1 8DAYS)
  2. LEVOFLOXACIN [Concomitant]
  3. AZITHROMYCIN [Concomitant]
  4. RIBAVIRIN [Concomitant]
  5. THYMOCIN [Concomitant]

REACTIONS (5)
  - DIABETIC KETOACIDOSIS [None]
  - HYPERGLYCAEMIA [None]
  - HYPOCALCAEMIA [None]
  - HYPOKALAEMIA [None]
  - LUNG INFECTION [None]
